FAERS Safety Report 16929317 (Version 1)
Quarter: 2019Q4

REPORT INFORMATION
  Report Type: Spontaneous
  Country: KR (occurrence: KR)
  Receive Date: 20191017
  Receipt Date: 20191017
  Transmission Date: 20200122
  Serious: Yes (Hospitalization, Other)
  Sender: FDA-Public Use
  Company Number: KR-GLAXOSMITHKLINE-KR2019GSK185420

PATIENT
  Age: 55 Year
  Sex: Female

DRUGS (2)
  1. DICLOFENAC SODIUM. [Suspect]
     Active Substance: DICLOFENAC SODIUM
     Indication: OSTEOARTHRITIS
     Dosage: UNK
     Route: 030
  2. DICLOFENAC SODIUM. [Suspect]
     Active Substance: DICLOFENAC SODIUM
     Dosage: 37.5 MG/ML, UNK (0.05 CC)
     Route: 023

REACTIONS (6)
  - Urticaria [Unknown]
  - Hypotension [Unknown]
  - Drug reaction with eosinophilia and systemic symptoms [Unknown]
  - Chest discomfort [Unknown]
  - Anaphylactic reaction [Unknown]
  - Anaphylactic shock [Unknown]
